FAERS Safety Report 8085424-6 (Version None)
Quarter: 2012Q1

REPORT INFORMATION
  Report Type: 
  Country: None (occurrence: None)
  Receive Date: 20120128
  Receipt Date: 20110405
  Transmission Date: 20120608
  Serious: Yes (Hospitalization)
  Sender: FDA-Public Use
  Company Number: US-ABBOTT-11P-163-0697955-00

PATIENT
  Sex: Female

DRUGS (22)
  1. NADOLOL [Concomitant]
     Indication: HYPERTENSION
  2. SYNTHROID [Concomitant]
     Indication: HYPOTHYROIDISM
  3. MAGNESIUM OXIDE [Concomitant]
     Indication: MINERAL SUPPLEMENTATION
  4. COUGH WITH CODIENE [Concomitant]
     Indication: COUGH
  5. CYMBALTA [Concomitant]
     Indication: DEPRESSION
     Dosage: 30 MG- 2 TIMES A DAY
     Dates: start: 20110223
  6. TRIAMTERENE [Concomitant]
     Indication: FLUID RETENTION
  7. FOLIC ACID [Concomitant]
     Indication: VITAMIN SUPPLEMENTATION
  8. ASACOL [Concomitant]
     Indication: CROHN'S DISEASE
  9. PRILOSEC OTC [Concomitant]
     Indication: GASTROOESOPHAGEAL REFLUX DISEASE
     Dosage: AT HOUR OF SLEEP
  10. PLAQUENIL [Concomitant]
     Indication: ARTHRITIS
  11. CALCIUM W/VITAMIN D [Concomitant]
     Indication: PRODUCT USED FOR UNKNOWN INDICATION
  12. ASPIRIN [Concomitant]
     Indication: PRODUCT USED FOR UNKNOWN INDICATION
  13. NORCO [Concomitant]
     Indication: PAIN
  14. HUMIRA [Suspect]
     Indication: RHEUMATOID ARTHRITIS
     Route: 058
     Dates: start: 20101126, end: 20110404
  15. FISH OIL [Concomitant]
     Indication: PRODUCT USED FOR UNKNOWN INDICATION
  16. EFFEXOR [Concomitant]
     Indication: MOOD SWINGS
     Dosage: AT HOUR OF SLEEP
  17. METHOTREXATE [Concomitant]
     Indication: RHEUMATOID ARTHRITIS
     Dosage: 6 PILLS EVERY MONDAY
  18. VITAMIN E [Concomitant]
     Indication: VITAMIN SUPPLEMENTATION
     Dosage: AT HOUR OF SLEEP
  19. GLUCOSAMINE [Concomitant]
     Indication: PRODUCT USED FOR UNKNOWN INDICATION
  20. PREMARIN [Concomitant]
     Indication: HORMONE REPLACEMENT THERAPY
  21. ASCORBIC ACID [Concomitant]
     Indication: PRODUCT USED FOR UNKNOWN INDICATION
  22. VITAMIN B-12 [Concomitant]
     Indication: PRODUCT USED FOR UNKNOWN INDICATION

REACTIONS (4)
  - RHEUMATOID ARTHRITIS [None]
  - BRONCHITIS [None]
  - FALL [None]
  - STAPHYLOCOCCAL INFECTION [None]
